FAERS Safety Report 12217757 (Version 1)
Quarter: 2016Q1

REPORT INFORMATION
  Report Type: Spontaneous
  Country: GB (occurrence: GB)
  Receive Date: 20160329
  Receipt Date: 20160329
  Transmission Date: 20160526
  Serious: Yes (Death, Other)
  Sender: FDA-Public Use
  Company Number: GB-AMGEN-GBRSP2015129641

PATIENT
  Age: 33 Year
  Sex: Female

DRUGS (3)
  1. VINORELBINE [Concomitant]
     Active Substance: VINORELBINE\VINORELBINE TARTRATE
     Dosage: UNK
     Route: 065
  2. FASLODEX [Concomitant]
     Active Substance: FULVESTRANT
     Dosage: UNK
  3. XGEVA [Suspect]
     Active Substance: DENOSUMAB
     Indication: PRODUCT USED FOR UNKNOWN INDICATION
     Dosage: UNK
     Route: 065
     Dates: end: 201602

REACTIONS (15)
  - Neck pain [Unknown]
  - Nausea [Unknown]
  - Pyrexia [Unknown]
  - Blood calcium increased [Unknown]
  - Dyspnoea [Unknown]
  - Death [Fatal]
  - Migraine [Unknown]
  - Ingrowing nail [Unknown]
  - Fatigue [Unknown]
  - Neuropathy peripheral [Unknown]
  - Paraesthesia [Unknown]
  - Cough [Unknown]
  - Spinal pain [Unknown]
  - Localised infection [Unknown]
  - Back pain [Unknown]

NARRATIVE: CASE EVENT DATE: 20160319
